FAERS Safety Report 14417853 (Version 1)
Quarter: 2018Q1

REPORT INFORMATION
  Report Type: Report from Study
  Country: KR (occurrence: KR)
  Receive Date: 20180122
  Receipt Date: 20180122
  Transmission Date: 20180509
  Serious: Yes (Hospitalization, Other)
  Sender: FDA-Public Use
  Company Number: KR-EISAI MEDICAL RESEARCH-EC-2017-033142

PATIENT
  Age: 54 Year
  Sex: Female
  Weight: 48.6 kg

DRUGS (8)
  1. HALAVEN [Suspect]
     Active Substance: ERIBULIN MESYLATE
     Indication: BREAST CANCER
     Dosage: UNKNOWN
     Route: 041
     Dates: start: 20170630, end: 20171019
  2. HYDROMORPHONE [Concomitant]
     Active Substance: HYDROMORPHONE
  3. ENTELON [Concomitant]
  4. LIMAPROST KUKJE [Concomitant]
  5. REBAMIPIDE KUKJE [Concomitant]
  6. ULTRACET ER SEMI [Concomitant]
  7. KWANGDONG PREGABALIN [Concomitant]
  8. KUHNIL TIANEPTINE [Concomitant]

REACTIONS (2)
  - Pancytopenia [Recovered/Resolved]
  - Neck pain [Recovered/Resolved]

NARRATIVE: CASE EVENT DATE: 20171013
